FAERS Safety Report 7573904 (Version 3)
Quarter: 2015Q1

REPORT INFORMATION
  Report Type: Spontaneous
  Country: US (occurrence: US)
  Receive Date: 20100907
  Receipt Date: 20150108
  Transmission Date: 20150721
  Serious: Yes (Hospitalization)
  Sender: FDA-Public Use
  Company Number: US-BAYER-201032372NA

PATIENT
  Age: 52 Year
  Sex: Female
  Weight: 60 kg

DRUGS (16)
  1. FIORINAL [ACETYLSALICYLIC ACID,BUTALBITAL,CAFFEINE,PHENACETIN] [Concomitant]
     Indication: MIGRAINE
     Dosage: UNK UNK, PRN
     Dates: start: 1981
  2. ZOFRAN [Concomitant]
     Active Substance: ONDANSETRON HYDROCHLORIDE
  3. ATARAX [HYDROXYZINE HYDROCHLORIDE] [Concomitant]
     Dosage: 25 MG, BID
  4. VALTREX [Concomitant]
     Active Substance: VALACYCLOVIR HYDROCHLORIDE
     Dosage: 500 MG,30 DISPENSED
     Dates: start: 20080508, end: 20080613
  5. LOVAZA [Concomitant]
     Active Substance: OMEGA-3-ACID ETHYL ESTERS
     Dosage: 90 CAPSULES DISPENSED
     Dates: start: 20080605
  6. YASMIN [Suspect]
     Active Substance: DROSPIRENONE\ETHINYL ESTRADIOL
     Dosage: UNK UNK, UNK
     Route: 065
     Dates: start: 2002, end: 2008
  7. LISINOPRIL. [Concomitant]
     Active Substance: LISINOPRIL
     Indication: HYPERTENSION
     Dosage: UNK UNK, QD
     Dates: start: 2005
  8. SYNTHROID [Concomitant]
     Active Substance: LEVOTHYROXINE SODIUM
     Indication: HYPOTHYROIDISM
     Dosage: UNK
     Dates: start: 1981
  9. DORYX [Concomitant]
     Active Substance: DOXYCYCLINE HYCLATE
     Dosage: 100 MG, 180 DISPENSED EACH TIME
     Dates: start: 20080403, end: 20080703
  10. PROZAC [Concomitant]
     Active Substance: FLUOXETINE HYDROCHLORIDE
     Indication: DEPRESSION
     Dosage: 40 MG, QD
  11. ULTRAM [Concomitant]
     Active Substance: TRAMADOL HYDROCHLORIDE
     Dosage: 50 MG, PRN
  12. MELATONIN [Concomitant]
     Active Substance: MELATONIN
     Dosage: 3 MG, UNK
     Route: 048
  13. BREVOXYL [Concomitant]
     Active Substance: BENZOYL PEROXIDE
     Dosage: UNK
     Dates: start: 20080402
  14. YAZ [Suspect]
     Active Substance: DROSPIRENONE\ETHINYL ESTRADIOL
     Dosage: UNK UNK, UNK
     Route: 065
     Dates: start: 2002, end: 2008
  15. HYDROCHLOROTHIAZIDE. [Concomitant]
     Active Substance: HYDROCHLOROTHIAZIDE
     Dosage: 25 MG, UNK
  16. LABETALOL [Concomitant]
     Active Substance: LABETALOL\LABETALOL HYDROCHLORIDE

REACTIONS (6)
  - Mental disorder [Unknown]
  - General physical health deterioration [Unknown]
  - Pain [Unknown]
  - Cerebrovascular accident [Unknown]
  - Depression [Unknown]
  - Balance disorder [Unknown]

NARRATIVE: CASE EVENT DATE: 200807
